FAERS Safety Report 6598667-5 (Version None)
Quarter: 2010Q1

REPORT INFORMATION
  Report Type: 
  Country: None (occurrence: None)
  Receive Date: 20100224
  Receipt Date: 20100218
  Transmission Date: 20100710
  Serious: Yes (Other)
  Sender: FDA-Public Use
  Company Number: US-JNJFOC-20090709781

PATIENT
  Sex: Female
  Weight: 53.52 kg

DRUGS (4)
  1. NUCYNTA [Suspect]
     Indication: PAIN
     Dosage: 'ONLY TOOK FOUR TABLETS'
     Route: 048
  2. DURAGESIC-100 [Suspect]
     Indication: NEUROPATHY PERIPHERAL
     Route: 062
  3. XANAX [Concomitant]
     Indication: ANXIETY
  4. NASACORT [Concomitant]

REACTIONS (7)
  - BODY TEMPERATURE INCREASED [None]
  - HALLUCINATION [None]
  - INSOMNIA [None]
  - MUSCLE SPASMS [None]
  - OVERDOSE [None]
  - TREMOR [None]
  - WITHDRAWAL SYNDROME [None]
